FAERS Safety Report 26026042 (Version 2)
Quarter: 2025Q4

REPORT INFORMATION
  Report Type: Spontaneous
  Country: US (occurrence: US)
  Receive Date: 20251111
  Receipt Date: 20251126
  Transmission Date: 20260118
  Serious: No
  Sender: PFIZER
  Company Number: US-PFIZER INC-202500218823

PATIENT
  Age: 55 Year
  Sex: Female

DRUGS (1)
  1. CIBINQO [Suspect]
     Active Substance: ABROCITINIB
     Indication: Dermatitis atopic
     Dosage: 100 MG, DAILY X 2 BOTTLES
     Route: 048
     Dates: start: 2024

REACTIONS (2)
  - Blood cholesterol increased [Unknown]
  - Joint swelling [Unknown]

NARRATIVE: CASE EVENT DATE: 20241023
